FAERS Safety Report 18148074 (Version 1)
Quarter: 2020Q3

REPORT INFORMATION
  Report Type: Spontaneous
  Country: US (occurrence: US)
  Receive Date: 20200813
  Receipt Date: 20200813
  Transmission Date: 20201103
  Serious: No
  Sender: FDA-Public Use
  Company Number: US-TEVA-2020-US-1813300

PATIENT
  Age: 9 Year
  Sex: Male

DRUGS (1)
  1. LEVETIRACETAM TEVA [Suspect]
     Active Substance: LEVETIRACETAM
     Route: 065
     Dates: start: 2015

REACTIONS (1)
  - Urticaria [Not Recovered/Not Resolved]

NARRATIVE: CASE EVENT DATE: 202007
